FAERS Safety Report 13799839 (Version 1)
Quarter: 2017Q3

REPORT INFORMATION
  Report Type: Spontaneous
  Country: US (occurrence: US)
  Receive Date: 20170727
  Receipt Date: 20170727
  Transmission Date: 20171127
  Serious: Yes (Hospitalization, Disabling, Other)
  Sender: FDA-Public Use
  Company Number: None

PATIENT
  Age: 47 Year
  Sex: Female
  Weight: 108 kg

DRUGS (5)
  1. PREDNISONE. [Concomitant]
     Active Substance: PREDNISONE
  2. ADVIL [Concomitant]
     Active Substance: IBUPROFEN
  3. FOLIC ACID. [Concomitant]
     Active Substance: FOLIC ACID
  4. METHOTREXATE. [Concomitant]
     Active Substance: METHOTREXATE
  5. REMICADE [Suspect]
     Active Substance: INFLIXIMAB
     Indication: PSORIATIC ARTHROPATHY
     Dosage: OTHER FREQUENCY:EVERY 6 WEEKS;?
     Route: 042
     Dates: start: 20140301, end: 20170301

REACTIONS (6)
  - Dyskinesia [None]
  - Visual impairment [None]
  - Laceration [None]
  - Impaired driving ability [None]
  - Back pain [None]
  - Scar [None]

NARRATIVE: CASE EVENT DATE: 20170713
